FAERS Safety Report 7536643-6 (Version None)
Quarter: 2011Q2

REPORT INFORMATION
  Report Type: 
  Country: None (occurrence: None)
  Receive Date: 20110609
  Receipt Date: 20110524
  Transmission Date: 20111010
  Serious: Yes (Hospitalization)
  Sender: FDA-Public Use
  Company Number: A0774947A

PATIENT
  Age: 59 Year
  Sex: Male

DRUGS (13)
  1. AVANDIA [Suspect]
     Indication: DIABETES MELLITUS
     Dosage: 4MG PER DAY
     Route: 048
     Dates: start: 20030701, end: 20070101
  2. ASPIRIN [Concomitant]
  3. ALBUTEROL SULFATE AUTOHALER [Concomitant]
  4. GLIPIZIDE [Concomitant]
  5. NAPROXEN [Concomitant]
  6. METOPROLOL SUCCINATE [Concomitant]
  7. SIMVASTATIN [Concomitant]
  8. WELLBUTRIN SR [Concomitant]
  9. METFORMIN HYDROCHLORIDE [Concomitant]
  10. LISINOPRIL [Concomitant]
  11. ATORVASTATIN [Concomitant]
  12. PRILOSEC [Concomitant]
  13. VIAGRA [Concomitant]

REACTIONS (2)
  - MYOCARDITIS [None]
  - ACUTE MYOCARDIAL INFARCTION [None]
